FAERS Safety Report 4483703-2 (Version None)
Quarter: 2004Q4

REPORT INFORMATION
  Report Type: 
  Country: None (occurrence: None)
  Receive Date: 20041021
  Receipt Date: 20041013
  Transmission Date: 20050328
  Serious: Yes (Hospitalization, Other)
  Sender: FDA-Public Use
  Company Number: 2004239210US

PATIENT
  Age: 73 Year
  Sex: Male
  Weight: 105.2 kg

DRUGS (1)
  1. CELEBREX [Suspect]
     Indication: ARTHRITIS
     Dosage: ORAL
     Route: 048

REACTIONS (4)
  - ARRHYTHMIA [None]
  - FALL [None]
  - HAEMATOCHEZIA [None]
  - HIP FRACTURE [None]
